FAERS Safety Report 10206173 (Version 2)
Quarter: 2014Q2

REPORT INFORMATION
  Report Type: Report from Study
  Country: US (occurrence: US)
  Receive Date: 20140530
  Receipt Date: 20140530
  Transmission Date: 20141212
  Serious: Yes (Death)
  Sender: FDA-Public Use
  Company Number: US-ASTRAZENECA-2014SE18931

PATIENT
  Age: 93 Year
  Sex: Male
  Weight: 68 kg

DRUGS (3)
  1. SYMBICORT  PMDI [Suspect]
     Indication: ASTHMA
     Dosage: UNKNOWN STRENGTH AND FREQUENCY
     Route: 055
     Dates: start: 201402
  2. OMEPRAZOLE [Suspect]
     Route: 048
  3. FLUROSIMIDE [Concomitant]

REACTIONS (3)
  - Death [Fatal]
  - Dyspnoea [Unknown]
  - Cough [Unknown]
